FAERS Safety Report 23688084 (Version 1)
Quarter: 2024Q1

REPORT INFORMATION
  Report Type: Spontaneous
  Country: US (occurrence: US)
  Receive Date: 20240329
  Receipt Date: 20240329
  Transmission Date: 20240410
  Serious: No
  Sender: FDA-Public Use
  Company Number: US-SA-SAC20240326000475

PATIENT
  Age: 10 Year
  Sex: Male
  Weight: 44.4 kg

DRUGS (1)
  1. DUPIXENT [Suspect]
     Active Substance: DUPILUMAB
     Indication: Dermatitis atopic
     Dosage: 200 MG/QOW
     Route: 058
     Dates: start: 202309

REACTIONS (1)
  - Therapeutic response decreased [Unknown]
